FAERS Safety Report 23273443 (Version 7)
Quarter: 2024Q3

REPORT INFORMATION
  Report Type: Spontaneous
  Country: IN (occurrence: IN)
  Receive Date: 20231207
  Receipt Date: 20240918
  Transmission Date: 20241016
  Serious: Yes (Other)
  Sender: PFIZER
  Company Number: IN-PFIZER INC-PV202300196880

PATIENT
  Age: 52 Year
  Sex: Female

DRUGS (1)
  1. LORLATINIB [Suspect]
     Active Substance: LORLATINIB
     Dosage: 100 MG, 1X/DAY
     Route: 048
     Dates: start: 20230824

REACTIONS (6)
  - Electrocardiogram QT prolonged [Recovering/Resolving]
  - Electrocardiogram PR prolongation [Recovering/Resolving]
  - Musculoskeletal stiffness [Recovering/Resolving]
  - Blood cholesterol increased [Not Recovered/Not Resolved]
  - Blood triglycerides increased [Not Recovered/Not Resolved]
  - Low density lipoprotein increased [Not Recovered/Not Resolved]

NARRATIVE: CASE EVENT DATE: 20231121
